FAERS Safety Report 5670559-5 (Version None)
Quarter: 2008Q1

REPORT INFORMATION
  Report Type: 
  Country: None (occurrence: None)
  Receive Date: 20080318
  Receipt Date: 20080304
  Transmission Date: 20080703
  Serious: Yes (Hospitalization, Other)
  Sender: FDA-Public Use
  Company Number: US-AMGEN-QUU268073

PATIENT
  Sex: Female

DRUGS (2)
  1. ENBREL [Suspect]
     Indication: PSORIATIC ARTHROPATHY
     Route: 058
     Dates: start: 20070720
  2. VIVACTIL [Concomitant]
     Route: 048

REACTIONS (3)
  - ABORTION SPONTANEOUS [None]
  - BLOOD HUMAN CHORIONIC GONADOTROPIN ABNORMAL [None]
  - ECTOPIC PREGNANCY [None]
